FAERS Safety Report 8937157 (Version 1)
Quarter: 2012Q4

REPORT INFORMATION
  Report Type: Spontaneous
  Country: US (occurrence: None)
  Receive Date: 20121128
  Receipt Date: 20121128
  Transmission Date: 20130627
  Serious: Yes (Death, Hospitalization)
  Sender: FDA-Public Use
  Company Number: None

PATIENT
  Age: 98 Year
  Sex: Female
  Weight: 49.6 kg

DRUGS (11)
  1. COUMADIN [Suspect]
     Indication: DVT
     Dosage: 1MG QHS PO
     Route: 048
  2. METAMUCIL [Concomitant]
  3. VIT B [Concomitant]
  4. CALCIUM CARBONATE [Concomitant]
  5. COREG [Concomitant]
  6. PREDNISOLONE [Concomitant]
  7. TYLENOL [Concomitant]
  8. ATIVAN [Concomitant]
  9. HYDROCODONE/APAP [Concomitant]
  10. KEFLEX [Concomitant]
  11. CELEXA [Concomitant]

REACTIONS (4)
  - Fall [None]
  - Subarachnoid haemorrhage [None]
  - Haemorrhage intracranial [None]
  - Hydrocephalus [None]
